FAERS Safety Report 24698378 (Version 1)
Quarter: 2024Q4

REPORT INFORMATION
  Report Type: Spontaneous
  Country: US (occurrence: US)
  Receive Date: 20241204
  Receipt Date: 20241204
  Transmission Date: 20250115
  Serious: No
  Sender: PRIMUS PHARMACEUTICALS
  Company Number: US-PRIMUS-2024-US-030958

PATIENT
  Age: 75 Year
  Sex: Female

DRUGS (29)
  1. IMPOYZ [Suspect]
     Active Substance: CLOBETASOL PROPIONATE
     Indication: Psoriasis
     Dosage: AAA BID X 2 WEEKS ON, THEN QD X 2 WEEKS, PRN
     Route: 061
  2. ARAZLO [Concomitant]
     Active Substance: TAZAROTENE
  3. TREMFYA [Concomitant]
     Active Substance: GUSELKUMAB
  4. adult multivitamin with iron [Concomitant]
  5. chewable vitamin C [Concomitant]
  6. FISH OIL [Concomitant]
     Active Substance: FISH OIL
  7. MAGNESIUM [Concomitant]
     Active Substance: MAGNESIUM
  8. baby vitamin D3 [Concomitant]
  9. B12 [Concomitant]
  10. vitamin K with potassium [Concomitant]
  11. BIOTIN [Concomitant]
     Active Substance: BIOTIN
  12. ZINC GLUCONATE [Concomitant]
     Active Substance: ZINC GLUCONATE
  13. PREMARIN [Concomitant]
     Active Substance: ESTROGENS, CONJUGATED
  14. MELOXICAM [Concomitant]
     Active Substance: MELOXICAM
  15. FAMOTIDINE [Concomitant]
     Active Substance: FAMOTIDINE
  16. BENZONATATE [Concomitant]
     Active Substance: BENZONATATE
  17. MONTELUKAST [Concomitant]
     Active Substance: MONTELUKAST
  18. FUROSEMIDE [Concomitant]
     Active Substance: FUROSEMIDE
  19. AMLODIPINE BESYLATE [Concomitant]
     Active Substance: AMLODIPINE BESYLATE
  20. TRELEGY ELLIPTA [Concomitant]
     Active Substance: FLUTICASONE FUROATE\UMECLIDINIUM BROMIDE\VILANTEROL TRIFENATATE
  21. IPRATROPIUM BROMIDE [Concomitant]
     Active Substance: IPRATROPIUM BROMIDE
  22. JARDIANCE [Concomitant]
     Active Substance: EMPAGLIFLOZIN
  23. Remedy Calazime Protect Paste [Concomitant]
  24. FLUOCINONIDE [Concomitant]
     Active Substance: FLUOCINONIDE
  25. ZTALMY [Concomitant]
     Active Substance: GANAXOLONE
  26. DUOBRII [Concomitant]
     Active Substance: HALOBETASOL PROPIONATE\TAZAROTENE
  27. Cetaphil Restoraderm [Concomitant]
  28. MUPIROCIN [Concomitant]
     Active Substance: MUPIROCIN
  29. CLINDAMYCIN PHOSPHATE [Concomitant]
     Active Substance: CLINDAMYCIN PHOSPHATE

REACTIONS (2)
  - Skin discolouration [Unknown]
  - Product prescribing issue [Unknown]
